FAERS Safety Report 19711579 (Version 1)
Quarter: 2021Q3

REPORT INFORMATION
  Report Type: Spontaneous
  Country: CH (occurrence: CH)
  Receive Date: 20210817
  Receipt Date: 20210817
  Transmission Date: 20211014
  Serious: Yes (Other)
  Sender: FDA-Public Use
  Company Number: CH-009507513-2108CHE002912

PATIENT
  Age: 68 Year
  Sex: Male
  Weight: 72 kg

DRUGS (6)
  1. VALSARTAN. [Concomitant]
     Active Substance: VALSARTAN
     Dosage: VALSARTAN (EXACT PREPARATION UNKNOWN) 80 MG/DAY FOR SEVERAL YEARS
     Route: 048
  2. QUETIAPINE. [Concomitant]
     Active Substance: QUETIAPINE
     Dosage: QUETIAPINE (EXACT PREPARATION UNKNOWN) 25 MG/DAY FOR AT LEAST ONE YEAR
     Route: 048
     Dates: start: 2020
  3. PANTOPRAZOLE SODIUM SESQUIHYDRATE [Concomitant]
     Active Substance: PANTOPRAZOLE SODIUM
     Dosage: PANTOPRAZOLE (EXACT PREPARATION UNKNOWN) 40 MG/DAY SINCE AT LEAST AN UNSPECIFIED DATE IN APRIL 2020
     Route: 048
     Dates: start: 202104
  4. FERINJECT [Concomitant]
     Active Substance: FERRIC CARBOXYMALTOSE
     Dosage: FERRIC CARBOXYMALTOSE (FERINJECT) 1000 MG INTRAVENOUS ADMINISTRATION ON 11?MAR?2021 ; IN TOTAL
     Route: 041
     Dates: start: 20210311, end: 20210311
  5. KEYTRUDA [Suspect]
     Active Substance: PEMBROLIZUMAB
     Indication: TONSIL CANCER
     Dosage: PEMBROLIZUMAB (KEYTRUDA) 200 MG EVERY 3 WEEKS (MONOTHERAPY) INTRAVENOUS APPLICATION AS OF 15?DEC?201
     Route: 041
     Dates: start: 20201215, end: 20210216
  6. FERINJECT [Concomitant]
     Active Substance: FERRIC CARBOXYMALTOSE
     Dosage: FERRIC CARBOXYMALTOSE (FERINJECT) 1000 MG INTRAVENOUS ADMINISTRATION ON 16?FEB?2021 ; IN TOTAL
     Route: 041
     Dates: start: 20210216, end: 20210216

REACTIONS (5)
  - Autoimmune disorder [Recovering/Resolving]
  - Autoimmune myositis [Recovering/Resolving]
  - Autoimmune hepatitis [Recovering/Resolving]
  - Autoimmune myocarditis [Recovering/Resolving]
  - Autoimmune colitis [Recovering/Resolving]

NARRATIVE: CASE EVENT DATE: 20210311
